FAERS Safety Report 8892367 (Version 1)
Quarter: 2012Q4

REPORT INFORMATION
  Report Type: 
  Country: AR (occurrence: AR)
  Receive Date: 20121107
  Receipt Date: 20121107
  Transmission Date: 20130627
  Serious: Yes (Hospitalization)
  Sender: FDA-Public Use
  Company Number: AR-GLAXOSMITHKLINE-A0999605A

PATIENT
  Age: 59 Year
  Sex: Female

DRUGS (1)
  1. LAMICTAL [Suspect]
     Indication: BIPOLAR DISORDER
     Dosage: 50MG Per day
     Route: 048
     Dates: end: 20121026

REACTIONS (2)
  - Rash [Recovering/Resolving]
  - Skin lesion [Recovering/Resolving]
